FAERS Safety Report 7803221-0 (Version None)
Quarter: 2011Q4

REPORT INFORMATION
  Report Type: 
  Country: None (occurrence: None)
  Receive Date: 20111007
  Receipt Date: 20110928
  Transmission Date: 20120403
  Serious: Yes (Other)
  Sender: FDA-Public Use
  Company Number: PL-TEVA-303591ISR

PATIENT
  Sex: Female
  Weight: 117 kg

DRUGS (1)
  1. LEUCOVORIN CALCIUM [Suspect]
     Indication: COLON CANCER
     Dosage: 40 MILLIGRAM;
     Route: 042
     Dates: start: 20110801, end: 20110801

REACTIONS (2)
  - RASH [None]
  - RESTLESSNESS [None]
